FAERS Safety Report 9154876 (Version 1)
Quarter: 2013Q1

REPORT INFORMATION
  Report Type: Spontaneous
  Country: US (occurrence: None)
  Receive Date: 20130305
  Receipt Date: 20130305
  Transmission Date: 20140127
  Serious: Yes (Hospitalization)
  Sender: FDA-Public Use
  Company Number: None

PATIENT
  Age: 44 Year
  Sex: Male
  Weight: 82.2 kg

DRUGS (3)
  1. TYLENOL [Suspect]
     Indication: BACK PAIN
     Dosage: 3 TO 4 YEARS?2600MG TO 3250MG 6 TIMES DAILY PO
     Route: 048
  2. IBUPROFEN [Concomitant]
  3. ^GOODNIGHT^ HERBAL MIXTURE FOR SLEEP [Concomitant]

REACTIONS (5)
  - Nausea [None]
  - Vomiting [None]
  - Asthenia [None]
  - Hepatitis acute [None]
  - Overdose [None]
